FAERS Safety Report 6546563-1 (Version None)
Quarter: 2010Q1

REPORT INFORMATION
  Report Type: 
  Country: None (occurrence: None)
  Receive Date: 20100122
  Receipt Date: 20100120
  Transmission Date: 20100710
  Serious: Yes (Death, Hospitalization)
  Sender: FDA-Public Use
  Company Number: CHPA2010US01526

PATIENT
  Age: 91 Year
  Sex: Male
  Weight: 52.154 kg

DRUGS (1)
  1. SLOW FE IRON TABLETS (NCH) [Suspect]
     Indication: ANAEMIA
     Dosage: 160 MG, ONCE/SINGLE
     Route: 048
     Dates: start: 20091001, end: 20091001

REACTIONS (2)
  - ABDOMINAL DISCOMFORT [None]
  - PNEUMONIA [None]
